FAERS Safety Report 8515024 (Version 4)
Quarter: 2014Q2

REPORT INFORMATION
  Report Type: Spontaneous
  Country: AR (occurrence: AR)
  Receive Date: 20120417
  Receipt Date: 20140409
  Transmission Date: 20141212
  Serious: Yes (Death, Hospitalization)
  Sender: FDA-Public Use
  Company Number: AR-BIOGENIDEC-2012BI012588

PATIENT
  Age: 52 Year
  Sex: Female

DRUGS (3)
  1. AVONEX [Suspect]
     Indication: MULTIPLE SCLEROSIS
     Route: 030
     Dates: start: 2009
  2. AVONEX [Suspect]
     Indication: MULTIPLE SCLEROSIS
     Route: 030
     Dates: start: 201204
  3. LEVOTHYROXINE [Concomitant]

REACTIONS (4)
  - Death [Fatal]
  - Dehydration [Unknown]
  - Respiratory disorder [Unknown]
  - Diarrhoea [Unknown]
